FAERS Safety Report 4365548-7 (Version None)
Quarter: 2004Q2

REPORT INFORMATION
  Report Type: 
  Country: None (occurrence: None)
  Receive Date: 20040526
  Receipt Date: 20040521
  Transmission Date: 20050107
  Serious: Yes (Death, Life-Threatening, Disabling, Other)
  Sender: FDA-Public Use
  Company Number: GB-GLAXOSMITHKLINE-B0333566A

PATIENT
  Age: 80 Year
  Sex: Male
  Weight: 77 kg

DRUGS (2)
  1. AVODART [Suspect]
     Indication: PROSTATISM
     Dosage: 1CAP PER DAY
     Route: 048
     Dates: start: 20040427, end: 20040518
  2. TAMSULOSIN HYDROCHLORIDE [Concomitant]
     Route: 065
     Dates: start: 20040427

REACTIONS (1)
  - SUDDEN DEATH [None]
